FAERS Safety Report 5805206-2 (Version None)
Quarter: 2008Q3

REPORT INFORMATION
  Report Type: 
  Country: None (occurrence: None)
  Receive Date: 20080707
  Receipt Date: 20080626
  Transmission Date: 20090109
  Serious: Yes (Hospitalization)
  Sender: FDA-Public Use
  Company Number: 2008-02195

PATIENT
  Age: 6 Year
  Sex: Male
  Weight: 22.8 kg

DRUGS (7)
  1. VELCADE [Suspect]
     Indication: NEUROBLASTOMA
     Dosage: 1.04 MG, INTRAVENOUS
     Route: 042
     Dates: start: 20080519, end: 20080530
  2. IRINOTECAN HCL [Suspect]
     Indication: NEUROBLASTOMA
     Dosage: 30 MG, INTRAVENOUS
     Route: 042
     Dates: start: 20080519, end: 20080523
  3. HEPARIN [Concomitant]
  4. OXYCODONE HCL [Concomitant]
  5. POTASSIUM IODIDE (POTASSIUM IODIDE) [Concomitant]
  6. PRILOSEC [Concomitant]
  7. ZOFRAN [Concomitant]

REACTIONS (4)
  - BACILLUS INFECTION [None]
  - BLOOD CULTURE POSITIVE [None]
  - HAEMOGLOBIN DECREASED [None]
  - PLATELET COUNT DECREASED [None]
